FAERS Safety Report 23112099 (Version 2)
Quarter: 2023Q4

REPORT INFORMATION
  Report Type: Spontaneous
  Country: KR (occurrence: KR)
  Receive Date: 20231026
  Receipt Date: 20231226
  Transmission Date: 20240110
  Serious: Yes (Other)
  Sender: FDA-Public Use
  Company Number: KR-009507513-2310KOR010933

PATIENT
  Age: 65 Year
  Sex: Female
  Weight: 43 kg

DRUGS (7)
  1. PEMBROLIZUMAB [Suspect]
     Active Substance: PEMBROLIZUMAB
     Indication: Endometrial cancer recurrent
     Dosage: 200 MILLIGRAM; DOSES: 1-2
     Route: 042
     Dates: start: 20220215, end: 20220308
  2. PEMBROLIZUMAB [Suspect]
     Active Substance: PEMBROLIZUMAB
     Dosage: 200 MILLIGRAM; DOSES: 3-5
     Route: 042
     Dates: start: 20220330, end: 20220511
  3. PEMBROLIZUMAB [Suspect]
     Active Substance: PEMBROLIZUMAB
     Dosage: 200 MILLIGRAM
     Route: 042
     Dates: start: 20220603, end: 20220603
  4. LENVATINIB MESYLATE [Suspect]
     Active Substance: LENVATINIB MESYLATE
     Indication: Endometrial cancer recurrent
     Dosage: 20 MILLIGRAM/ 1 DAY
     Route: 048
     Dates: start: 20220215, end: 20220420
  5. LENVATINIB MESYLATE [Suspect]
     Active Substance: LENVATINIB MESYLATE
     Dosage: 14 MILLIGRAM/ 1 DAY
     Route: 048
     Dates: start: 20220426, end: 20220622
  6. NORVASC [Concomitant]
     Active Substance: AMLODIPINE BESYLATE
     Indication: Hypertension
     Dosage: 1 TAB
     Route: 048
     Dates: start: 20201204
  7. MIRABEGRON [Concomitant]
     Active Substance: MIRABEGRON
     Indication: Hydronephrosis
     Dosage: 1 TAB
     Route: 048
     Dates: start: 20210210

REACTIONS (4)
  - Lower gastrointestinal haemorrhage [Recovered/Resolved]
  - Inappropriate schedule of product administration [Unknown]
  - Inappropriate schedule of product administration [Unknown]
  - Product use issue [Unknown]

NARRATIVE: CASE EVENT DATE: 20220330
